FAERS Safety Report 10515546 (Version 1)
Quarter: 2014Q4

REPORT INFORMATION
  Report Type: Spontaneous
  Country: JP (occurrence: JP)
  Receive Date: 20141014
  Receipt Date: 20141014
  Transmission Date: 20150528
  Serious: Yes (Other)
  Sender: FDA-Public Use
  Company Number: JP-OTSUKA-JP-2014-18072

PATIENT

DRUGS (3)
  1. DEPAS [Concomitant]
     Active Substance: ETIZOLAM
     Indication: PRODUCT USED FOR UNKNOWN INDICATION
     Route: 048
  2. PLETAAL [Suspect]
     Active Substance: CILOSTAZOL
     Indication: PRODUCT USED FOR UNKNOWN INDICATION
     Dosage: 100 MG MILLIGRAM(S), BID
     Route: 048
  3. ETHYL ICOSAPENTATE [Concomitant]
     Active Substance: ETHYL ICOSAPENTATE
     Indication: PRODUCT USED FOR UNKNOWN INDICATION
     Route: 048

REACTIONS (6)
  - Upper limb fracture [Unknown]
  - Hip fracture [Unknown]
  - Palpitations [Unknown]
  - Blood pressure increased [Recovering/Resolving]
  - Anxiety [Unknown]
  - Heart rate increased [Unknown]
